FAERS Safety Report 5970462-7 (Version None)
Quarter: 2008Q4

REPORT INFORMATION
  Report Type: 
  Country: None (occurrence: None)
  Receive Date: 20081126
  Receipt Date: 20081027
  Transmission Date: 20090506
  Serious: No
  Sender: FDA-Public Use
  Company Number: US-ABBOTT-08P-163-0483939-00

PATIENT
  Sex: Male

DRUGS (4)
  1. SIMCOR [Suspect]
     Indication: HIGH DENSITY LIPOPROTEIN DECREASED
     Dosage: 1 - 500/20MG TABLET EVERY NIGHT
     Route: 048
     Dates: start: 20081007, end: 20081026
  2. CARVEDILOL [Concomitant]
     Indication: BLOOD PRESSURE MANAGEMENT
     Route: 048
  3. AMLODIPINE [Concomitant]
     Indication: BLOOD PRESSURE MANAGEMENT
     Route: 048
  4. HYZAAR [Concomitant]
     Indication: BLOOD PRESSURE MANAGEMENT
     Route: 048

REACTIONS (2)
  - BLOOD BLISTER [None]
  - FAECES DISCOLOURED [None]
